FAERS Safety Report 12181983 (Version 1)
Quarter: 2016Q1

REPORT INFORMATION
  Report Type: Not Available
  Country: US (occurrence: US)
  Receive Date: 20160315
  Receipt Date: 20160315
  Transmission Date: 20160526
  Serious: Yes (Other)
  Sender: FDA-Public Use
  Company Number: US-ANIPHARMA-2016-US-001351

PATIENT
  Age: 51 Year
  Sex: Male

DRUGS (1)
  1. TESTOSTERONE GEL 1% (NON-SPECIFIC) [Suspect]
     Active Substance: TESTOSTERONE
     Dosage: 50 MG DAILY
     Route: 061

REACTIONS (2)
  - Osteonecrosis [Unknown]
  - Drug-disease interaction [Unknown]
